FAERS Safety Report 4490874-0 (Version None)
Quarter: 2004Q4

REPORT INFORMATION
  Report Type: 
  Country: None (occurrence: None)
  Receive Date: 20041027
  Receipt Date: 20041014
  Transmission Date: 20050328
  Serious: Yes (Other)
  Sender: FDA-Public Use
  Company Number: 2004079587

PATIENT
  Sex: Male

DRUGS (2)
  1. ATORVASTATIN CALCIUM [Suspect]
     Indication: ILL-DEFINED DISORDER
  2. CLOPIDOGREL BISULFATE [Suspect]
     Indication: ILL-DEFINED DISORDER

REACTIONS (3)
  - MYOCARDIAL INFARCTION [None]
  - PRURITUS [None]
  - TRANSAMINASES INCREASED [None]
